FAERS Safety Report 8008309-X (Version None)
Quarter: 2011Q4

REPORT INFORMATION
  Report Type: 
  Country: None (occurrence: None)
  Receive Date: 20111227
  Receipt Date: 20111221
  Transmission Date: 20120403
  Serious: Yes (Other)
  Sender: FDA-Public Use
  Company Number: US-ROCHE-783821

PATIENT
  Sex: Female
  Weight: 55.388 kg

DRUGS (2)
  1. ACCUTANE [Suspect]
     Route: 065
     Dates: start: 19990401, end: 20000501
  2. ACCUTANE [Suspect]
     Indication: ACNE
     Route: 065
     Dates: start: 19980116, end: 19980401

REACTIONS (5)
  - COLITIS ULCERATIVE [None]
  - INFLAMMATORY BOWEL DISEASE [None]
  - DERMATITIS ATOPIC [None]
  - DEPRESSION [None]
  - STRESS [None]
